FAERS Safety Report 9628643 (Version 2)
Quarter: 2013Q4

REPORT INFORMATION
  Report Type: Spontaneous
  Country: US (occurrence: US)
  Receive Date: 20131017
  Receipt Date: 20131127
  Transmission Date: 20140711
  Serious: No
  Sender: FDA-Public Use
  Company Number: US-PFIZER INC-2013295331

PATIENT
  Age: 54 Year
  Sex: Female
  Weight: 57.14 kg

DRUGS (2)
  1. CELEBREX [Suspect]
     Indication: NERVE INJURY
     Dosage: 200 MG, 1X/DAY
     Route: 048
     Dates: start: 20130727
  2. CELEBREX [Suspect]
     Indication: ARTHRITIS

REACTIONS (4)
  - Off label use [Unknown]
  - Vitamin B12 increased [Unknown]
  - Oral discomfort [Unknown]
  - Glossodynia [Unknown]
